FAERS Safety Report 6719280-2 (Version None)
Quarter: 2010Q2

REPORT INFORMATION
  Report Type: 
  Country: None (occurrence: None)
  Receive Date: 20100507
  Receipt Date: 20100423
  Transmission Date: 20101027
  Serious: Yes (Hospitalization, Disabling)
  Sender: FDA-Public Use
  Company Number: NL_TT_10_00001

PATIENT
  Sex: Female

DRUGS (1)
  1. DEXRAZOXANE [Suspect]
     Indication: EXTRAVASATION

REACTIONS (4)
  - DRUG ADMINISTRATION ERROR [None]
  - DRUG INEFFECTIVE [None]
  - INFUSION SITE EXTRAVASATION [None]
  - SKIN GRAFT [None]
